FAERS Safety Report 7744916-7 (Version None)
Quarter: 2011Q3

REPORT INFORMATION
  Report Type: 
  Country: None (occurrence: None)
  Receive Date: 20110913
  Receipt Date: 20110908
  Transmission Date: 20111222
  Serious: Yes (Life-Threatening, Hospitalization, Other)
  Sender: FDA-Public Use
  Company Number: BE-BIOGENIDEC-2011BI028891

PATIENT
  Age: 33 Year
  Sex: Male

DRUGS (14)
  1. DURAGESIC-100 [Concomitant]
     Route: 062
  2. SPIRALEXA [Concomitant]
  3. FORLAX [Concomitant]
  4. MINIRIN [Concomitant]
  5. ENOXAPARIN SODIUM [Concomitant]
  6. LITICAN [Concomitant]
  7. METHYLPREDNISOLONE [Concomitant]
     Indication: MULTIPLE SCLEROSIS RELAPSE
  8. PANTOPRAZOLE [Concomitant]
  9. TYSABRI [Suspect]
     Indication: RELAPSING-REMITTING MULTIPLE SCLEROSIS
     Route: 042
     Dates: start: 20110509, end: 20110617
  10. MINIRIN [Concomitant]
  11. LORAZEPAM [Concomitant]
  12. MINIRIN [Concomitant]
  13. RISPERDAL [Concomitant]
  14. SOLU-MEDROL [Concomitant]

REACTIONS (1)
  - GLIOBLASTOMA [None]
